FAERS Safety Report 15431102 (Version 1)
Quarter: 2018Q4

REPORT INFORMATION
  Report Type: Spontaneous
  Country: US (occurrence: US)
  Receive Date: 20180926
  Receipt Date: 20180926
  Transmission Date: 20190204
  Serious: No
  Sender: FDA-Public Use
  Company Number: US-INDIVIOR LIMITED-INDV-112620-2018

PATIENT
  Sex: Male

DRUGS (2)
  1. SUBUTEX [Suspect]
     Active Substance: BUPRENORPHINE HYDROCHLORIDE
     Indication: PRODUCT USED FOR UNKNOWN INDICATION
     Dosage: 8 MG, BROKE THE TABLET AND DID MULTIPLE DOSING
     Route: 065
     Dates: start: 201807
  2. SUBUTEX [Suspect]
     Active Substance: BUPRENORPHINE HYDROCHLORIDE
     Dosage: UNK, TOOK REST OF THE TABLET
     Route: 065
     Dates: start: 20180717

REACTIONS (3)
  - Wrong technique in product usage process [Unknown]
  - Intentional product misuse [Unknown]
  - Feeling abnormal [Unknown]

NARRATIVE: CASE EVENT DATE: 201807
